FAERS Safety Report 5139417-9 (Version None)
Quarter: 2006Q4

REPORT INFORMATION
  Report Type: 
  Country: None (occurrence: None)
  Receive Date: 20061030
  Receipt Date: 20060109
  Transmission Date: 20070319
  Serious: No
  Sender: FDA-Public Use
  Company Number: US-GLAXOSMITHKLINE-A0588383A

PATIENT
  Age: 65 Year
  Sex: Female

DRUGS (8)
  1. SEREVENT [Suspect]
     Indication: ASTHMA
     Dosage: 2PUFF TWICE PER DAY
     Route: 055
     Dates: start: 20051125
  2. LISINOPRIL [Suspect]
     Dosage: 10MG PER DAY
     Dates: start: 20051215
  3. FLOVENT [Concomitant]
  4. LEVOXYL [Concomitant]
  5. LISINOPRIL [Concomitant]
  6. CALCIUM GLUCONATE [Concomitant]
  7. VITAMINS [Concomitant]
  8. NEURONTIN [Concomitant]

REACTIONS (2)
  - COUGH [None]
  - PRESCRIBED OVERDOSE [None]
